FAERS Safety Report 6445582-3 (Version None)
Quarter: 2009Q4

REPORT INFORMATION
  Report Type: 
  Country: None (occurrence: None)
  Receive Date: 20091110
  Receipt Date: 20090828
  Transmission Date: 20100525
  Serious: No
  Sender: FDA-Public Use
  Company Number: 1000008523

PATIENT
  Age: 66 Year
  Sex: Female

DRUGS (6)
  1. SAVELLA [Suspect]
     Indication: FIBROMYALGIA
     Dosage: 12.5 MG (12.5 MG, 1 IN 1 D), ORAL
     Route: 048
     Dates: start: 20090826
  2. VICODIN [Concomitant]
  3. MORPHINE [Concomitant]
  4. TENORMIN [Concomitant]
  5. XANAX [Concomitant]
  6. SYNTHROID [Concomitant]

REACTIONS (2)
  - HYPERHIDROSIS [None]
  - PERIPHERAL COLDNESS [None]
